FAERS Safety Report 14958977 (Version 1)
Quarter: 2018Q2

REPORT INFORMATION
  Report Type: Spontaneous
  Country: US (occurrence: US)
  Receive Date: 20180510
  Receipt Date: 20180510
  Transmission Date: 20180711
  Serious: No
  Sender: FDA-Public Use
  Company Number: None

PATIENT
  Age: 10 Year
  Sex: Female
  Weight: 50.4 kg

DRUGS (1)
  1. BURN OUT SPF-30 SUNSCREEN [Suspect]
     Active Substance: ZINC OXIDE
     Indication: PROPHYLAXIS AGAINST SOLAR RADIATION
     Route: 061
     Dates: start: 20180506, end: 20180506

REACTIONS (3)
  - Application site swelling [None]
  - Application site erythema [None]
  - Blister [None]

NARRATIVE: CASE EVENT DATE: 20180507
